FAERS Safety Report 11393139 (Version 1)
Quarter: 2015Q3

REPORT INFORMATION
  Report Type: Spontaneous
  Country: US (occurrence: US)
  Receive Date: 20150818
  Receipt Date: 20150818
  Transmission Date: 20151125
  Serious: No
  Sender: FDA-Public Use
  Company Number: US-BAYER-2015-400934

PATIENT
  Age: 37 Year
  Sex: Female
  Weight: 124.26 kg

DRUGS (1)
  1. ALEVE [Suspect]
     Active Substance: NAPROXEN SODIUM
     Indication: BACK PAIN
     Dosage: 2 DF, QD
     Route: 048
     Dates: start: 2000

REACTIONS (2)
  - Product use issue [Unknown]
  - Product use issue [None]

NARRATIVE: CASE EVENT DATE: 201402
